FAERS Safety Report 5503966-1 (Version None)
Quarter: 2007Q4

REPORT INFORMATION
  Report Type: 
  Country: None (occurrence: None)
  Receive Date: 20071030
  Receipt Date: 20071030
  Transmission Date: 20080405
  Serious: Yes (Hospitalization)
  Sender: FDA-Public Use
  Company Number: None

PATIENT
  Age: 58 Year
  Sex: Male

DRUGS (1)
  1. BORTEZOMIB [Suspect]
     Dosage: 2.6MG OTHER IV
     Route: 042
     Dates: start: 20070710, end: 20071024

REACTIONS (15)
  - ABDOMINAL PAIN [None]
  - ADVERSE REACTION [None]
  - ASTHENIA [None]
  - BLOOD POTASSIUM DECREASED [None]
  - DISCOMFORT [None]
  - DIZZINESS [None]
  - GOUT [None]
  - HYPOKALAEMIA [None]
  - NAUSEA [None]
  - ORAL INTAKE REDUCED [None]
  - PRURITUS [None]
  - SENSORY LOSS [None]
  - THROMBOCYTOPENIA [None]
  - URTICARIA [None]
  - VOMITING [None]
